FAERS Safety Report 15751568 (Version 1)
Quarter: 2018Q4

REPORT INFORMATION
  Report Type: Report from Study
  Country: MX (occurrence: MX)
  Receive Date: 20181221
  Receipt Date: 20181221
  Transmission Date: 20190205
  Serious: Yes (Death, Other)
  Sender: FDA-Public Use
  Company Number: PHHY2018MX191649

PATIENT
  Age: 56 Year
  Sex: Female
  Weight: 45 kg

DRUGS (5)
  1. FOLIC ACID. [Concomitant]
     Active Substance: FOLIC ACID
     Indication: CEREBROVASCULAR ACCIDENT
     Dosage: 1 DF, Q24H
     Route: 048
     Dates: start: 20181012, end: 20181113
  2. ASCORBIC ACID. [Concomitant]
     Active Substance: ASCORBIC ACID
     Indication: CEREBROVASCULAR ACCIDENT
     Dosage: 1 DF, Q12H
     Route: 048
     Dates: start: 20181012, end: 20181113
  3. REVOLADE [Suspect]
     Active Substance: ELTROMBOPAG
     Indication: PLATELET COUNT DECREASED
     Dosage: 1 DF, QD
     Route: 048
     Dates: start: 20181109, end: 20181112
  4. GLUCOSAMINE [Concomitant]
     Active Substance: GLUCOSAMINE
     Indication: PRODUCT USED FOR UNKNOWN INDICATION
     Route: 065
  5. OMEPRAZOLE. [Concomitant]
     Active Substance: OMEPRAZOLE
     Indication: PROPHYLAXIS
     Dosage: 1 DF, Q24H
     Route: 048
     Dates: start: 201704, end: 20181113

REACTIONS (6)
  - Hypothermia [Unknown]
  - Death [Fatal]
  - Dyspnoea [Unknown]
  - Hypophagia [Unknown]
  - Haemoglobin decreased [Unknown]
  - Platelet count decreased [Unknown]

NARRATIVE: CASE EVENT DATE: 20181112
